FAERS Safety Report 4596522-3 (Version None)
Quarter: 2005Q1

REPORT INFORMATION
  Report Type: 
  Country: None (occurrence: None)
  Receive Date: 20050228
  Receipt Date: 20040510
  Transmission Date: 20050727
  Serious: No
  Sender: FDA-Public Use
  Company Number: 8011

PATIENT
  Age: 53 Year
  Sex: Male

DRUGS (2)
  1. METHOTREXATE [Suspect]
     Indication: RHEUMATOID ARTHRITIS
     Dosage: PO
     Route: 048
     Dates: start: 20010101
  2. ETANERCEPT [Suspect]
     Indication: RHEUMATOID ARTHRITIS
     Dosage: 25 MG 2/WK  SC
     Route: 058
     Dates: start: 20040101, end: 20040526

REACTIONS (3)
  - EOSINOPHILIA [None]
  - LYMPHOCYTE MORPHOLOGY ABNORMAL [None]
  - LYMPHOMA [None]
